FAERS Safety Report 8576846-5 (Version None)
Quarter: 2012Q3

REPORT INFORMATION
  Report Type: 
  Country: None (occurrence: None)
  Receive Date: 20120807
  Receipt Date: 20120420
  Transmission Date: 20120928
  Serious: Yes (Death, Other)
  Sender: FDA-Public Use
  Company Number: DE-CELGENEUS-062-50794-12060634

PATIENT
  Age: 78 Year
  Sex: Female
  Weight: 60.6 kg

DRUGS (2)
  1. VIDAZA [Suspect]
     Route: 058
     Dates: start: 20110409, end: 20110415
  2. VIDAZA [Suspect]
     Route: 058
     Dates: start: 20110509, end: 20111120

REACTIONS (12)
  - GRANULOCYTES ABNORMAL [None]
  - VOMITING [None]
  - ACUTE MYELOID LEUKAEMIA [None]
  - THROMBOCYTOPENIA [None]
  - WHITE BLOOD CELL DISORDER [None]
  - FATIGUE [None]
  - ANAEMIA [None]
  - CONSTIPATION [None]
  - NAUSEA [None]
  - HEPATIC ENZYME ABNORMAL [None]
  - PYREXIA [None]
  - SKIN DISORDER [None]
